FAERS Safety Report 5501069-3 (Version None)
Quarter: 2007Q4

REPORT INFORMATION
  Report Type: 
  Country: None (occurrence: None)
  Receive Date: 20071029
  Receipt Date: 20071020
  Transmission Date: 20080405
  Serious: Yes (Death, Other)
  Sender: FDA-Public Use
  Company Number: US-GENENTECH-250125

PATIENT
  Age: 73 Year
  Sex: Female

DRUGS (12)
  1. RITUXAN [Suspect]
     Indication: CHRONIC LYMPHOCYTIC LEUKAEMIA
     Dosage: 100 MG, Q3W
     Route: 042
  2. RITUXAN [Suspect]
     Dosage: 375 MG/M2, Q3W
     Route: 042
  3. PENTOSTATIN [Suspect]
     Indication: CHRONIC LYMPHOCYTIC LEUKAEMIA
     Dosage: 4 MG/M2, Q3W
     Route: 042
  4. CYCLOPHOSPHAMIDE [Suspect]
     Indication: CHRONIC LYMPHOCYTIC LEUKAEMIA
     Dosage: 600 MG/M2, Q3W
     Route: 042
  5. 5-HYDROXYTRYPTAMINE [Concomitant]
     Indication: PROPHYLAXIS
  6. HYDRATION NOS [Concomitant]
     Indication: PROPHYLAXIS
  7. ACETAMINOPHEN [Concomitant]
     Indication: PREMEDICATION
  8. DIPHENHYDRAMINE HCL [Concomitant]
     Indication: PREMEDICATION
  9. ALLOPURINOL [Concomitant]
     Indication: DRUG USE FOR UNKNOWN INDICATION
  10. TRIMETHOPRIM + SULFAMETHOXAZOLE [Concomitant]
     Indication: PROPHYLAXIS
  11. MEDICATION (UNK INGREDIENT) [Concomitant]
     Indication: PROPHYLAXIS
  12. NEUPOGEN [Concomitant]
     Indication: DRUG USE FOR UNKNOWN INDICATION
     Dosage: 5 A?G/KG, UNK
     Route: 058

REACTIONS (4)
  - CARDIAC FAILURE [None]
  - CEREBROVASCULAR DISORDER [None]
  - RENAL FAILURE [None]
  - SEPSIS [None]
